FAERS Safety Report 13601825 (Version 1)
Quarter: 2017Q2

REPORT INFORMATION
  Report Type: Spontaneous
  Country: AU (occurrence: AU)
  Receive Date: 20170601
  Receipt Date: 20170601
  Transmission Date: 20170830
  Serious: Yes (Other)
  Sender: FDA-Public Use
  Company Number: AU-HIKMA PHARMACEUTICALS CO. LTD-2017AU005185

PATIENT

DRUGS (1)
  1. INFLIXIMAB HOSPIRA [Suspect]
     Active Substance: INFLIXIMAB
     Indication: CROHN^S DISEASE
     Dosage: UNK
     Route: 065

REACTIONS (3)
  - Skin cancer [Unknown]
  - Urinary tract infection [Unknown]
  - Fatigue [Unknown]
